FAERS Safety Report 7946184-X (Version None)
Quarter: 2011Q4

REPORT INFORMATION
  Report Type: 
  Country: None (occurrence: None)
  Receive Date: 20111129
  Receipt Date: 20111118
  Transmission Date: 20120403
  Serious: Yes (Hospitalization)
  Sender: FDA-Public Use
  Company Number: US-SANOFI-AVENTIS-2011SA077661

PATIENT
  Age: 60 Year
  Sex: Female

DRUGS (6)
  1. TRASTUZUMAB [Suspect]
     Route: 042
     Dates: start: 20011105
  2. DOXORUBICIN HCL [Suspect]
     Indication: BREAST CANCER
     Route: 042
  3. DOCETAXEL [Suspect]
     Indication: BREAST CANCER
     Route: 042
  4. DEXAMETHASONE [Suspect]
     Route: 065
  5. TRASTUZUMAB [Suspect]
     Indication: BREAST CANCER
     Dosage: LOADING DOSE
     Route: 042
     Dates: start: 20011105, end: 20011105
  6. PYRIDOXINE HYDROCHLORIDE [Suspect]
     Indication: BREAST CANCER
     Route: 048

REACTIONS (1)
  - HYPERGLYCAEMIA [None]
